FAERS Safety Report 11058153 (Version 1)
Quarter: 2015Q2

REPORT INFORMATION
  Report Type: Report from Study
  Country: US (occurrence: US)
  Receive Date: 20150423
  Receipt Date: 20150423
  Transmission Date: 20150821
  Serious: Yes (Other)
  Sender: FDA-Public Use
  Company Number: US-ROCHE-1563846

PATIENT

DRUGS (28)
  1. MYCOPHENOLATE MOFETIL. [Suspect]
     Active Substance: MYCOPHENOLATE MOFETIL
     Indication: JUVENILE IDIOPATHIC ARTHRITIS
     Route: 065
  2. MELOXICAM. [Suspect]
     Active Substance: MELOXICAM
     Indication: JUVENILE IDIOPATHIC ARTHRITIS
     Route: 065
  3. SULFASALAZINE. [Suspect]
     Active Substance: SULFASALAZINE
     Indication: JUVENILE IDIOPATHIC ARTHRITIS
     Route: 065
  4. RITUXIMAB [Suspect]
     Active Substance: RITUXIMAB
     Indication: JUVENILE IDIOPATHIC ARTHRITIS
     Route: 065
  5. TOCILIZUMAB [Suspect]
     Active Substance: TOCILIZUMAB
     Indication: JUVENILE IDIOPATHIC ARTHRITIS
     Route: 065
  6. PIROXICAM. [Suspect]
     Active Substance: PIROXICAM
     Indication: JUVENILE IDIOPATHIC ARTHRITIS
     Route: 065
  7. LEFLUNOMIDE. [Suspect]
     Active Substance: LEFLUNOMIDE
     Indication: JUVENILE IDIOPATHIC ARTHRITIS
     Route: 065
  8. ANAKINRA [Suspect]
     Active Substance: ANAKINRA
     Indication: JUVENILE IDIOPATHIC ARTHRITIS
     Route: 065
  9. NAPROXEN. [Suspect]
     Active Substance: NAPROXEN
     Indication: JUVENILE IDIOPATHIC ARTHRITIS
     Route: 065
  10. CELECOXIB. [Suspect]
     Active Substance: CELECOXIB
     Indication: JUVENILE IDIOPATHIC ARTHRITIS
     Route: 065
  11. METHOTREXATE [Suspect]
     Active Substance: METHOTREXATE
     Indication: JUVENILE IDIOPATHIC ARTHRITIS
     Route: 065
  12. DICLOFENAC [Suspect]
     Active Substance: DICLOFENAC
     Indication: JUVENILE IDIOPATHIC ARTHRITIS
     Route: 065
  13. OXAPROZIN. [Suspect]
     Active Substance: OXAPROZIN
     Indication: JUVENILE IDIOPATHIC ARTHRITIS
     Route: 065
  14. RILONACEPT [Suspect]
     Active Substance: RILONACEPT
     Indication: JUVENILE IDIOPATHIC ARTHRITIS
     Route: 065
  15. CYCLOPHOSPHAMIDE. [Suspect]
     Active Substance: CYCLOPHOSPHAMIDE
     Indication: JUVENILE IDIOPATHIC ARTHRITIS
     Route: 065
  16. HYDROXYCHLOROQUINE [Suspect]
     Active Substance: HYDROXYCHLOROQUINE
     Indication: JUVENILE IDIOPATHIC ARTHRITIS
     Route: 065
  17. CANAKINUMAB [Suspect]
     Active Substance: CANAKINUMAB
     Indication: JUVENILE IDIOPATHIC ARTHRITIS
     Route: 065
  18. AZATHIOPRINE. [Suspect]
     Active Substance: AZATHIOPRINE
     Indication: JUVENILE IDIOPATHIC ARTHRITIS
     Route: 065
  19. TOLMETIN [Suspect]
     Active Substance: TOLMETIN
     Indication: JUVENILE IDIOPATHIC ARTHRITIS
     Route: 065
  20. SULINDAC. [Suspect]
     Active Substance: SULINDAC
     Indication: JUVENILE IDIOPATHIC ARTHRITIS
     Route: 065
  21. ETANERCEPT [Suspect]
     Active Substance: ETANERCEPT
     Indication: JUVENILE IDIOPATHIC ARTHRITIS
     Route: 065
  22. CYCLOSPORINE. [Suspect]
     Active Substance: CYCLOSPORINE
     Indication: JUVENILE IDIOPATHIC ARTHRITIS
     Route: 065
  23. IVIG [Suspect]
     Active Substance: HUMAN IMMUNOGLOBULIN G
     Indication: JUVENILE IDIOPATHIC ARTHRITIS
     Route: 042
  24. ADALIMUMAB [Suspect]
     Active Substance: ADALIMUMAB
     Indication: JUVENILE IDIOPATHIC ARTHRITIS
     Route: 065
  25. INFLIXIMAB [Suspect]
     Active Substance: INFLIXIMAB
     Indication: JUVENILE IDIOPATHIC ARTHRITIS
     Route: 065
  26. IBUPROFEN. [Suspect]
     Active Substance: IBUPROFEN
     Indication: JUVENILE IDIOPATHIC ARTHRITIS
     Route: 065
  27. ABATACEPT [Suspect]
     Active Substance: ABATACEPT
     Indication: JUVENILE IDIOPATHIC ARTHRITIS
     Route: 065
  28. ETOPOSIDE. [Suspect]
     Active Substance: ETOPOSIDE
     Indication: JUVENILE IDIOPATHIC ARTHRITIS
     Route: 065

REACTIONS (41)
  - Depression [Unknown]
  - Endocrine disorder [Unknown]
  - Gastrointestinal disorder [Unknown]
  - Autoimmune disorder [Unknown]
  - Cognitive disorder [Unknown]
  - Cardiovascular disorder [Unknown]
  - Tooth disorder [Unknown]
  - Nephropathy [Unknown]
  - Osteomyelitis [Unknown]
  - Headache [Unknown]
  - Coccidioidomycosis [Unknown]
  - Hallucination [Unknown]
  - Drug intolerance [Unknown]
  - Viral infection [Unknown]
  - Varicella [Unknown]
  - Liver function test abnormal [Unknown]
  - Injury [Unknown]
  - Lung infection [Unknown]
  - Hypersensitivity [Unknown]
  - Tic [Unknown]
  - Anaphylactic reaction [Unknown]
  - Gastrointestinal haemorrhage [Unknown]
  - Juvenile idiopathic arthritis [Unknown]
  - Infusion related reaction [Unknown]
  - Myelitis transverse [Unknown]
  - Migraine [Unknown]
  - Suicidal ideation [Unknown]
  - Infection [Unknown]
  - Demyelination [Unknown]
  - Educational problem [Unknown]
  - Skin disorder [Unknown]
  - Urogenital disorder [Unknown]
  - Benign intracranial hypertension [Unknown]
  - Herpes zoster [Unknown]
  - Seizure [Unknown]
  - Arthritis infective [Unknown]
  - Skin infection [Unknown]
  - Blood disorder [Unknown]
  - Histiocytosis haematophagic [Unknown]
  - Pain [Unknown]
  - Respiratory disorder [Unknown]
